FAERS Safety Report 6693784-3 (Version None)
Quarter: 2010Q2

REPORT INFORMATION
  Report Type: 
  Country: None (occurrence: None)
  Receive Date: 20100423
  Receipt Date: 20100417
  Transmission Date: 20101027
  Serious: Yes (Other)
  Sender: FDA-Public Use
  Company Number: US-PFIZER INC-2010049338

PATIENT

DRUGS (1)
  1. ZYVOX [Suspect]

REACTIONS (3)
  - ENTEROCOCCAL INFECTION [None]
  - PLATELET COUNT DECREASED [None]
  - THROMBOCYTOPENIA [None]
